FAERS Safety Report 6132647-9 (Version None)
Quarter: 2009Q1

REPORT INFORMATION
  Report Type: 
  Country: None (occurrence: None)
  Receive Date: 20090324
  Receipt Date: 20090317
  Transmission Date: 20090719
  Serious: Yes (Other)
  Sender: FDA-Public Use
  Company Number: SPV1-2009-00465

PATIENT
  Age: 11 Year
  Sex: Male

DRUGS (1)
  1. VYVANSE [Suspect]
     Indication: ATTENTION DEFICIT/HYPERACTIVITY DISORDER
     Dosage: 1X/DAY;QD;ORAL
     Route: 048
     Dates: start: 20090101

REACTIONS (9)
  - ABNORMAL BEHAVIOUR [None]
  - AFFECT LABILITY [None]
  - CRYING [None]
  - HALLUCINATION, AUDITORY [None]
  - NEGATIVISM [None]
  - SCRATCH [None]
  - SCREAMING [None]
  - SELF INJURIOUS BEHAVIOUR [None]
  - VOMITING [None]
